FAERS Safety Report 8598052-0 (Version None)
Quarter: 2012Q3

REPORT INFORMATION
  Report Type: 
  Country: None (occurrence: None)
  Receive Date: 20120816
  Receipt Date: 20120808
  Transmission Date: 20120928
  Serious: Yes (Other)
  Sender: FDA-Public Use
  Company Number: JP-PFIZER INC-2012194134

PATIENT
  Age: 38 Year
  Sex: Female
  Weight: 48 kg

DRUGS (7)
  1. FENTANYL CITRATE [Interacting]
     Dosage: 100 UG, SINGLE
  2. CYCLOPHOSPHAMIDE [Interacting]
     Indication: BREAST CANCER
     Dosage: 750 MG, UNK
  3. ROCURONIUM BROMIDE [Interacting]
     Dosage: 30 MG, SINGLE
  4. DOCETAXEL [Interacting]
     Dosage: 100 MG, UNK
  5. FLUOROURACIL [Interacting]
     Indication: BREAST CANCER
     Dosage: 750 MG, UNK
  6. EPIRUBICIN HYDROCHLORIDE [Suspect]
     Indication: BREAST CANCER
     Dosage: 150 MG, UNK
  7. PROPOFOL [Interacting]
     Dosage: 90 MG, SINGLE

REACTIONS (3)
  - DRUG INTERACTION [None]
  - BRADYCARDIA [None]
  - EXTRASYSTOLES [None]
